FAERS Safety Report 11588369 (Version 1)
Quarter: 2015Q4

REPORT INFORMATION
  Report Type: Report from Study
  Country: US (occurrence: US)
  Receive Date: 20151002
  Receipt Date: 20151002
  Transmission Date: 20160304
  Serious: Yes (Hospitalization, Other)
  Sender: FDA-Public Use
  Company Number: US-BRISTOL-MYERS SQUIBB COMPANY-BMS-2015-063739

PATIENT
  Sex: Female
  Weight: 91 kg

DRUGS (1)
  1. ABATACEPT [Suspect]
     Active Substance: ABATACEPT
     Indication: RHEUMATOID ARTHRITIS
     Dosage: UNK
     Route: 042
     Dates: start: 2009

REACTIONS (5)
  - Cancer surgery [Unknown]
  - Lung neoplasm surgery [Unknown]
  - Malignant melanoma [Unknown]
  - Lung neoplasm malignant [Unknown]
  - Pneumonia [Unknown]

NARRATIVE: CASE EVENT DATE: 2010
